FAERS Safety Report 6899566-1 (Version None)
Quarter: 2010Q3

REPORT INFORMATION
  Report Type: 
  Country: None (occurrence: None)
  Receive Date: 20100803
  Receipt Date: 20100728
  Transmission Date: 20110219
  Serious: Yes (Congenital Anomaly)
  Sender: FDA-Public Use
  Company Number: US-RANBAXY-2010US-36002

PATIENT

DRUGS (8)
  1. ZIDOVUDINE [Suspect]
     Indication: ANTIVIRAL TREATMENT
     Dosage: UNK, UNK
     Route: 064
     Dates: start: 20100104, end: 20100105
  2. PREZISTA [Suspect]
     Indication: ANTIVIRAL TREATMENT
     Dosage: 800 MG DAILY
     Route: 064
     Dates: start: 20090909, end: 20090916
  3. PREZISTA [Suspect]
     Dosage: 1200 MG DAILY
     Route: 064
     Dates: start: 20090917, end: 20091007
  4. PREZISTA [Suspect]
     Dosage: 1200 MG DAILY
     Route: 064
     Dates: start: 20091008, end: 20100324
  5. COMBIVIR [Suspect]
     Indication: ANTIVIRAL TREATMENT
     Dosage: UNK
     Route: 064
     Dates: start: 20090909
  6. NORVIR [Suspect]
     Indication: ANTIVIRAL TREATMENT
     Dosage: 100 MG DAILY
     Route: 064
     Dates: start: 20090909, end: 20090916
  7. NORVIR [Suspect]
     Dosage: 200MG DAILY
     Route: 064
     Dates: start: 20090917, end: 20091007
  8. NORVIR [Suspect]
     Dosage: 200 MG DAILY
     Route: 064
     Dates: start: 20091008

REACTIONS (4)
  - CARDIAC MURMUR [None]
  - CONGENITAL ANOMALY [None]
  - DRUG EXPOSURE DURING PREGNANCY [None]
  - HYPERBILIRUBINAEMIA NEONATAL [None]
